FAERS Safety Report 8321282-X (Version None)
Quarter: 2012Q2

REPORT INFORMATION
  Report Type: 
  Country: None (occurrence: None)
  Receive Date: 20120430
  Receipt Date: 20120423
  Transmission Date: 20120825
  Serious: Yes (Hospitalization)
  Sender: FDA-Public Use
  Company Number: US-BAYER-2012-040471

PATIENT
  Age: 47 Year
  Sex: Female

DRUGS (5)
  1. ALBUTEROL [Concomitant]
     Dosage: UNK UNK, PRN
  2. SINGULAIR [Concomitant]
     Dosage: 10 MG, UNK
  3. YAZ [Suspect]
     Indication: ENDOMETRIOSIS
     Dosage: UNK
  4. ASPIRIN [Concomitant]
     Dosage: 81 MG, UNK
  5. SIMCOR [Concomitant]

REACTIONS (1)
  - PULMONARY EMBOLISM [None]
